FAERS Safety Report 21320807 (Version 1)
Quarter: 2022Q3

REPORT INFORMATION
  Report Type: Spontaneous
  Country: US (occurrence: None)
  Receive Date: 20220912
  Receipt Date: 20220912
  Transmission Date: 20221027
  Serious: No
  Sender: FDA-Public Use
  Company Number: 2022A292045

PATIENT
  Sex: Female
  Weight: 59 kg

DRUGS (4)
  1. BREZTRI [Suspect]
     Active Substance: BUDESONIDE\FORMOTEROL\GLYCOPYRROLATE
     Indication: Dyspnoea
     Dosage: 2 PUFFS, BID
     Route: 055
  2. BREZTRI [Suspect]
     Active Substance: BUDESONIDE\FORMOTEROL\GLYCOPYRROLATE
     Indication: Chronic obstructive pulmonary disease
     Dosage: 2 PUFFS, BID
     Route: 055
  3. BREZTRI [Suspect]
     Active Substance: BUDESONIDE\FORMOTEROL\GLYCOPYRROLATE
     Indication: Dyspnoea
     Dosage: 2 PUFFS, BID
     Route: 055
  4. BREZTRI [Suspect]
     Active Substance: BUDESONIDE\FORMOTEROL\GLYCOPYRROLATE
     Indication: Chronic obstructive pulmonary disease
     Dosage: 2 PUFFS, BID
     Route: 055

REACTIONS (11)
  - Hypersensitivity [Unknown]
  - Swelling face [Unknown]
  - Pruritus [Unknown]
  - Rash [Unknown]
  - Fungal infection [Unknown]
  - Tremor [Unknown]
  - Nervousness [Unknown]
  - Burning sensation [Unknown]
  - Pain [Unknown]
  - Mental impairment [Unknown]
  - Weight increased [Unknown]
